FAERS Safety Report 25240544 (Version 1)
Quarter: 2025Q2

REPORT INFORMATION
  Report Type: Spontaneous
  Country: US (occurrence: US)
  Receive Date: 20250425
  Receipt Date: 20250425
  Transmission Date: 20250716
  Serious: Yes (Other)
  Sender: TEVA
  Company Number: US-TEVA-VS-3323855

PATIENT
  Sex: Male

DRUGS (1)
  1. ADDERALL [Suspect]
     Active Substance: AMPHETAMINE ASPARTATE\AMPHETAMINE SULFATE\DEXTROAMPHETAMINE SACCHARATE\DEXTROAMPHETAMINE SULFATE
     Indication: Product used for unknown indication
     Route: 065

REACTIONS (7)
  - Cognitive disorder [Unknown]
  - Therapeutic product effect decreased [Unknown]
  - Brain fog [Unknown]
  - Fatigue [Unknown]
  - Emotional disorder [Unknown]
  - Drug ineffective [Unknown]
  - Therapeutic product effect delayed [Unknown]
